FAERS Safety Report 23787592 (Version 3)
Quarter: 2024Q2

REPORT INFORMATION
  Report Type: Spontaneous
  Country: US (occurrence: US)
  Receive Date: 20240426
  Receipt Date: 20240605
  Transmission Date: 20240716
  Serious: Yes (Hospitalization, Other)
  Sender: FDA-Public Use
  Company Number: US-JNJFOC-20240445038

PATIENT
  Age: 69 Year
  Sex: Female

DRUGS (2)
  1. SPRAVATO [Suspect]
     Active Substance: ESKETAMINE
     Indication: Depression
     Dosage: 56 MG, TOTAL OF 8 DOSES
     Dates: start: 20221205, end: 20221229
  2. SPRAVATO [Suspect]
     Active Substance: ESKETAMINE
     Dosage: 84 MG, TOTAL OF 3 DOSES
     Dates: start: 20230104, end: 20230502

REACTIONS (9)
  - Gait inability [Unknown]
  - Hypokinesia [Not Recovered/Not Resolved]
  - Mastectomy [Unknown]
  - Procedural pain [Unknown]
  - Brain fog [Not Recovered/Not Resolved]
  - General physical health deterioration [Unknown]
  - Feeling abnormal [Unknown]
  - Drug ineffective [Unknown]
  - Dizziness [Unknown]

NARRATIVE: CASE EVENT DATE: 20230101
